FAERS Safety Report 10731431 (Version 1)
Quarter: 2015Q1

REPORT INFORMATION
  Report Type: Spontaneous
  Country: US (occurrence: US)
  Receive Date: 20150123
  Receipt Date: 20150123
  Transmission Date: 20150721
  Serious: Yes (Hospitalization)
  Sender: FDA-Public Use
  Company Number: US-AUROBINDO-AUR-APL-2015-00278

PATIENT
  Age: 53 Year
  Sex: Male

DRUGS (1)
  1. TOPIRAMATE. [Suspect]
     Active Substance: TOPIRAMATE
     Indication: SEIZURE
     Dosage: UNK
     Route: 065

REACTIONS (8)
  - Productive cough [Unknown]
  - Dyspnoea [Unknown]
  - Lethargy [Unknown]
  - Metabolic acidosis [Unknown]
  - Septic shock [Unknown]
  - Hypokalaemia [Unknown]
  - Lactic acidosis [Unknown]
  - Pneumonia [Unknown]
